FAERS Safety Report 8467450-8 (Version None)
Quarter: 2012Q2

REPORT INFORMATION
  Report Type: 
  Country: None (occurrence: None)
  Receive Date: 20120626
  Receipt Date: 20120405
  Transmission Date: 20120825
  Serious: Yes (Other)
  Sender: FDA-Public Use
  Company Number: US-ASTRAZENECA-2012SE22618

PATIENT
  Age: 55 Year
  Sex: Female

DRUGS (1)
  1. CAPRELSA [Suspect]
     Indication: THYROID CANCER
     Route: 048

REACTIONS (3)
  - APHAGIA [None]
  - ELECTROCARDIOGRAM QT INTERVAL ABNORMAL [None]
  - NAUSEA [None]
